FAERS Safety Report 11111551 (Version 2)
Quarter: 2015Q2

REPORT INFORMATION
  Report Type: Spontaneous
  Country: JP (occurrence: JP)
  Receive Date: 20150514
  Receipt Date: 20150609
  Transmission Date: 20150821
  Serious: No
  Sender: FDA-Public Use
  Company Number: JP-ROCHE-1577328

PATIENT
  Age: 80 Year
  Sex: Female
  Weight: 63 kg

DRUGS (7)
  1. BONVIVA [Suspect]
     Active Substance: IBANDRONATE SODIUM
     Indication: OSTEOPOROSIS
     Route: 042
     Dates: start: 20150403
  2. EVISTA [Concomitant]
     Active Substance: RALOXIFENE HYDROCHLORIDE
     Route: 048
     Dates: start: 19921019
  3. AMLODIPINE [Concomitant]
     Active Substance: AMLODIPINE BESYLATE
     Route: 048
     Dates: start: 20141114
  4. MUCOSTA [Concomitant]
     Active Substance: REBAMIPIDE
     Route: 048
     Dates: start: 19921019
  5. ZYLORIC [Concomitant]
     Active Substance: ALLOPURINOL
     Route: 048
     Dates: start: 19921019
  6. BLOPRESS [Concomitant]
     Active Substance: CANDESARTAN CILEXETIL
     Route: 048
     Dates: start: 19921019
  7. EDIROL [Concomitant]
     Active Substance: ELDECALCITOL
     Route: 048
     Dates: start: 19921019

REACTIONS (5)
  - Peripheral venous disease [Unknown]
  - Oedema peripheral [Recovering/Resolving]
  - Brain natriuretic peptide increased [Unknown]
  - Protein total abnormal [Unknown]
  - Cardiac failure [Unknown]

NARRATIVE: CASE EVENT DATE: 20150404
